FAERS Safety Report 4871892-7 (Version None)
Quarter: 2006Q1

REPORT INFORMATION
  Report Type: 
  Country: None (occurrence: None)
  Receive Date: 20060104
  Receipt Date: 20051114
  Transmission Date: 20060701
  Serious: Yes (Death, Hospitalization, Other)
  Sender: FDA-Public Use
  Company Number: US-MERCK-0511USA02326

PATIENT
  Age: 69 Year
  Sex: Female
  Weight: 50 kg

DRUGS (16)
  1. VIOXX [Suspect]
     Indication: RHEUMATOID ARTHRITIS
     Route: 048
     Dates: start: 19990901, end: 20021215
  2. PREDNISONE [Concomitant]
     Route: 065
  3. DARVOCET-N 100 [Concomitant]
     Route: 065
  4. VASOTEC [Concomitant]
     Route: 065
  5. PREMARIN [Concomitant]
     Route: 065
  6. FUROSEMIDE [Concomitant]
     Route: 065
  7. ZOCOR [Concomitant]
     Route: 065
  8. CARDIZEM [Concomitant]
     Route: 065
  9. ISOSORBIDE [Concomitant]
     Route: 065
  10. VALIUM [Concomitant]
     Route: 065
  11. VITAMIN E [Concomitant]
     Route: 065
  12. METHOTREXATE [Concomitant]
     Route: 065
  13. CELEXA [Concomitant]
     Route: 065
  14. LORATADINE [Concomitant]
     Route: 065
  15. VITAMIN E [Concomitant]
     Route: 065
  16. OIL OF GARLIC [Concomitant]
     Route: 065

REACTIONS (26)
  - ACUTE MYOCARDIAL INFARCTION [None]
  - ANGINA UNSTABLE [None]
  - ARTERIOSCLEROSIS CORONARY ARTERY [None]
  - ATROPHIC VULVOVAGINITIS [None]
  - BREAST CANCER [None]
  - CARDIAC FAILURE CONGESTIVE [None]
  - CARDIOMYOPATHY [None]
  - CEREBRAL INFARCTION [None]
  - CHEST PAIN [None]
  - CONFUSIONAL STATE [None]
  - DEPRESSION [None]
  - DEVICE RELATED INFECTION [None]
  - DIVERTICULITIS [None]
  - INTERVERTEBRAL DISC DEGENERATION [None]
  - JOINT INSTABILITY [None]
  - LYMPHOEDEMA [None]
  - MYOCARDIAL ISCHAEMIA [None]
  - NASAL SEPTUM PERFORATION [None]
  - NON-CARDIAC CHEST PAIN [None]
  - ORTHOSTATIC HYPOTENSION [None]
  - OSTEOARTHRITIS [None]
  - RENAL FAILURE [None]
  - SYNCOPE [None]
  - URGE INCONTINENCE [None]
  - URINARY TRACT INFECTION [None]
  - URINARY TRACT INFECTION BACTERIAL [None]
